FAERS Safety Report 11971888 (Version 1)
Quarter: 2016Q1

REPORT INFORMATION
  Report Type: Spontaneous
  Country: CH (occurrence: CH)
  Receive Date: 20160128
  Receipt Date: 20160128
  Transmission Date: 20160526
  Serious: Yes (Other)
  Sender: FDA-Public Use
  Company Number: CH-TEVA-627512ISR

PATIENT
  Sex: Male

DRUGS (3)
  1. VALACICLOVIR-MEPHA 1000 [Interacting]
     Active Substance: VALACYCLOVIR HYDROCHLORIDE
     Route: 065
     Dates: end: 201601
  2. VALACICLOVIR-MEPHA 1000 [Suspect]
     Active Substance: VALACYCLOVIR HYDROCHLORIDE
     Indication: HERPES VIRUS INFECTION
     Route: 065
  3. DUODART [Interacting]
     Active Substance: DUTASTERIDE\TAMSULOSIN
     Route: 065

REACTIONS (2)
  - Urinary retention [Recovered/Resolved]
  - Drug interaction [Unknown]
